FAERS Safety Report 6528871-3 (Version None)
Quarter: 2010Q1

REPORT INFORMATION
  Report Type: 
  Country: None (occurrence: None)
  Receive Date: 20100106
  Receipt Date: 20091223
  Transmission Date: 20100710
  Serious: Yes (Death)
  Sender: FDA-Public Use
  Company Number: US-SANOFI-AVENTIS-2009SA001699

PATIENT
  Age: 69 Year
  Sex: Male
  Weight: 89.5 kg

DRUGS (19)
  1. ELOXATIN [Suspect]
     Indication: COLON CANCER STAGE III
     Route: 041
     Dates: start: 20091019, end: 20091019
  2. ELOXATIN [Suspect]
     Route: 041
     Dates: start: 20090602, end: 20091019
  3. FLUOROURACIL [Concomitant]
     Route: 065
     Dates: start: 20090602, end: 20091019
  4. LEUCOVORIN CALCIUM [Concomitant]
     Route: 065
     Dates: start: 20090602
  5. LISINOPRIL [Concomitant]
     Indication: HYPERTENSION
     Dosage: INCREASED FROM 10MG TO 80 MG/DAY OVER SEVERAL MONTHS
     Route: 065
     Dates: end: 20091005
  6. HYDROCHLOROTHIAZIDE [Concomitant]
     Indication: HYPERTENSION
     Route: 065
     Dates: start: 20090615, end: 20091019
  7. LOSARTAN [Concomitant]
     Indication: HYPERTENSION
     Route: 065
  8. REMERON [Concomitant]
     Indication: DEPRESSION
     Route: 065
     Dates: start: 20090805, end: 20091024
  9. NIFEDICAL [Concomitant]
     Indication: HYPERTENSION
     Dosage: DISCONTINUED DUE TO LOWER EXTREMITY EDEMA
     Route: 065
     Dates: start: 20090914, end: 20090921
  10. PROCHLORPERAZINE [Concomitant]
     Route: 065
  11. DOXAZOSIN [Concomitant]
     Route: 065
  12. CHONDROITIN SULFATE/GLUCOSAMINE HYDROCHLORIDE [Concomitant]
     Route: 065
  13. LOPERAMIDE [Concomitant]
     Route: 065
  14. ESOMEPRAZOLE SODIUM (NEXIUM) [Concomitant]
     Route: 065
  15. ONDANSETRON [Concomitant]
     Route: 065
  16. PROPOXYPHENE HCL CAP [Concomitant]
     Route: 065
  17. MIRTAZAPINE [Concomitant]
     Route: 065
  18. DOCUSATE SODIUM [Concomitant]
     Route: 065
  19. ACETAMINOPHEN [Concomitant]
     Route: 065

REACTIONS (5)
  - COUGH [None]
  - DYSPNOEA [None]
  - INTERSTITIAL LUNG DISEASE [None]
  - PYREXIA [None]
  - RESPIRATORY DISTRESS [None]
